FAERS Safety Report 8336896-0 (Version None)
Quarter: 2012Q2

REPORT INFORMATION
  Report Type: 
  Country: None (occurrence: None)
  Receive Date: 20120504
  Receipt Date: 20120427
  Transmission Date: 20120825
  Serious: Yes (Hospitalization)
  Sender: FDA-Public Use
  Company Number: PHHY2012CA036560

PATIENT
  Age: 70 Year
  Sex: Male

DRUGS (5)
  1. LABETALOL HCL [Concomitant]
  2. SUFENTANIL [Concomitant]
     Indication: ANAESTHESIA
     Dosage: 15 UG, UNK
     Route: 042
  3. PROPOFOL [Concomitant]
     Dosage: 200 MG, UNK
     Route: 042
  4. ESMOLOL HCL [Concomitant]
  5. ROCURONIUM BROMIDE [Suspect]
     Indication: ANAESTHESIA
     Dosage: 50 MG, UNK
     Route: 042

REACTIONS (6)
  - HYPERTENSION [None]
  - HYPOTENSION [None]
  - BRADYCARDIA [None]
  - TACHYCARDIA [None]
  - PHAEOCHROMOCYTOMA [None]
  - HEART RATE INCREASED [None]
